FAERS Safety Report 11566254 (Version 2)
Quarter: 2015Q4

REPORT INFORMATION
  Report Type: Report from Study
  Country: NL (occurrence: NL)
  Receive Date: 20150929
  Receipt Date: 20151006
  Transmission Date: 20160304
  Serious: Yes (Hospitalization)
  Sender: FDA-Public Use
  Company Number: NL-ROCHE-1638904

PATIENT
  Age: 41 Year
  Sex: Female

DRUGS (33)
  1. MIRCERA [Suspect]
     Active Substance: METHOXY POLYETHYLENE GLYCOL-EPOETIN BETA
     Indication: NEPHROGENIC ANAEMIA
     Dosage: FLUID FOR INJECTION 400UG/ML WWSP 0.3ML
     Route: 058
     Dates: start: 20111126
  2. ACETYLSALICYLIC ACID [Concomitant]
     Active Substance: ASPIRIN
     Route: 048
  3. DESLORATADINE. [Concomitant]
     Active Substance: DESLORATADINE
     Route: 048
  4. FERROFUMARAT [Concomitant]
     Route: 048
  5. LABETALOL [Concomitant]
     Active Substance: LABETALOL\LABETALOL HYDROCHLORIDE
     Route: 048
  6. LISINOPRIL. [Concomitant]
     Active Substance: LISINOPRIL
     Route: 048
  7. OMEPRAZOLE. [Concomitant]
     Active Substance: OMEPRAZOLE
     Route: 048
  8. FOLIC ACID. [Concomitant]
     Active Substance: FOLIC ACID
     Route: 048
  9. LATANOPROST. [Concomitant]
     Active Substance: LATANOPROST
     Dosage: ONE DROP IN RIGHT EYE QD
     Route: 047
  10. OMEPRAZOLE. [Concomitant]
     Active Substance: OMEPRAZOLE
     Route: 065
  11. DORZOLAMIDE [Concomitant]
     Active Substance: DORZOLAMIDE
     Dosage: 1 DROP IN RIGHT EYE BID
     Route: 047
  12. COLECALCIFEROL [Concomitant]
     Active Substance: CHOLECALCIFEROL
     Dosage: ONCE A MONTH 2 AMPOULS (25000IU/ML)
     Route: 048
  13. DEXTRAN [Concomitant]
     Active Substance: DEXTRAN
     Dosage: 70/HYPROMELLOSIS 1/3MG/ML FL 15 ML
     Route: 047
  14. NEPAFENAC [Concomitant]
     Active Substance: NEPAFENAC
     Dosage: 1MG/ML FL 5 ML
     Route: 047
  15. PREDNISOLONE. [Concomitant]
     Active Substance: PREDNISOLONE
     Dosage: TWO 5MG TABLETS A DAY
     Route: 048
  16. TIMOLOL OPHTHALMIC [Concomitant]
     Dosage: 1 DROP IN RIGHT EYE BID
     Route: 047
  17. ACENOCOUMAROL [Concomitant]
     Active Substance: ACENOCOUMAROL
     Route: 048
  18. IBUPROFEN. [Concomitant]
     Active Substance: IBUPROFEN
     Route: 048
  19. NORFLOXACINE [Concomitant]
     Active Substance: NORFLOXACIN
     Route: 048
  20. HYDROXYCHLOROQUINE [Concomitant]
     Active Substance: HYDROXYCHLOROQUINE
     Route: 048
  21. LEVOCETIRIZINE [Concomitant]
     Active Substance: LEVOCETIRIZINE
     Route: 048
  22. MACROGOL [Concomitant]
     Active Substance: POLYETHYLENE GLYCOLS
     Dosage: MOVICOLON WITH GENERIC
     Route: 048
  23. NITROFURANTOINE [Concomitant]
     Route: 048
  24. PREDNISOLONE. [Concomitant]
     Active Substance: PREDNISOLONE
     Route: 048
  25. PREDNISOLONE. [Concomitant]
     Active Substance: PREDNISOLONE
     Dosage: TWO 5MG TABLETS A DAY
     Route: 048
  26. SIMVASTATIN. [Concomitant]
     Active Substance: SIMVASTATIN
     Route: 048
  27. CALCIUM CARBONATE. [Concomitant]
     Active Substance: CALCIUM CARBONATE
     Dosage: 1000MG CA
     Route: 048
  28. SODIUM HYDROCARBONATE [Concomitant]
     Route: 048
  29. AZATHIOPRINE. [Concomitant]
     Active Substance: AZATHIOPRINE
     Route: 048
  30. FUROSEMIDE. [Concomitant]
     Active Substance: FUROSEMIDE
     Route: 048
  31. LISINOPRIL. [Concomitant]
     Active Substance: LISINOPRIL
     Route: 048
  32. MYCOPHENOLIC ACID. [Concomitant]
     Active Substance: MYCOPHENOLIC ACID
     Dosage: TWO TABLETS OF 500MG BID
     Route: 048
  33. PREDNISOLONE. [Concomitant]
     Active Substance: PREDNISOLONE
     Route: 048

REACTIONS (1)
  - Pneumonia [Not Recovered/Not Resolved]

NARRATIVE: CASE EVENT DATE: 201509
